FAERS Safety Report 15128316 (Version 2)
Quarter: 2019Q1

REPORT INFORMATION
  Report Type: Spontaneous
  Country: US (occurrence: US)
  Receive Date: 20180711
  Receipt Date: 20190219
  Transmission Date: 20190417
  Serious: No
  Sender: FDA-Public Use
  Company Number: US-GLENMARK PHARMACEUTICALS-2017GMK029818

PATIENT

DRUGS (1)
  1. PRAMIPEXOLE DIHYDROCHLORIDE. [Suspect]
     Active Substance: PRAMIPEXOLE DIHYDROCHLORIDE
     Indication: RESTLESS LEGS SYNDROME
     Dosage: UNK UNK, BID (HALF TABLET)
     Route: 065
     Dates: start: 2016

REACTIONS (4)
  - Product physical issue [Unknown]
  - Wrong technique in product usage process [Unknown]
  - Insomnia [Recovered/Resolved]
  - Drug ineffective for unapproved indication [Unknown]
